FAERS Safety Report 25584208 (Version 1)
Quarter: 2025Q3

REPORT INFORMATION
  Report Type: Spontaneous
  Country: CA (occurrence: CA)
  Receive Date: 20250721
  Receipt Date: 20250721
  Transmission Date: 20251021
  Serious: Yes (Other)
  Sender: KARYOPHARM THERAPEUTICS
  Company Number: CA-KARYOPHARM-2022KPT001013

PATIENT

DRUGS (16)
  1. XPOVIO [Suspect]
     Active Substance: SELINEXOR
     Indication: Plasma cell myeloma
     Route: 048
     Dates: start: 202408, end: 202408
  2. XPOVIO [Suspect]
     Active Substance: SELINEXOR
     Route: 048
     Dates: start: 202408
  3. XPOVIO [Suspect]
     Active Substance: SELINEXOR
     Route: 048
     Dates: start: 20220812, end: 202211
  4. XPOVIO [Suspect]
     Active Substance: SELINEXOR
     Route: 065
     Dates: start: 202312
  5. XPOVIO [Suspect]
     Active Substance: SELINEXOR
     Route: 048
     Dates: start: 202311
  6. XPOVIO [Suspect]
     Active Substance: SELINEXOR
     Route: 048
     Dates: start: 20231016
  7. XPOVIO [Suspect]
     Active Substance: SELINEXOR
     Route: 048
     Dates: end: 20230223
  8. XPOVIO [Suspect]
     Active Substance: SELINEXOR
     Route: 048
     Dates: start: 202307, end: 202307
  9. XPOVIO [Suspect]
     Active Substance: SELINEXOR
     Route: 048
     Dates: start: 20230725
  10. XPOVIO [Suspect]
     Active Substance: SELINEXOR
     Route: 048
     Dates: start: 202303, end: 202305
  11. XPOVIO [Suspect]
     Active Substance: SELINEXOR
     Route: 048
     Dates: start: 20221128, end: 20221205
  12. XPOVIO [Suspect]
     Active Substance: SELINEXOR
     Route: 048
     Dates: end: 202503
  13. XPOVIO [Suspect]
     Active Substance: SELINEXOR
     Route: 048
     Dates: end: 2025
  14. XPOVIO [Suspect]
     Active Substance: SELINEXOR
     Route: 065
     Dates: start: 20250417
  15. DEXAMETHASONE [Concomitant]
     Active Substance: DEXAMETHASONE
  16. BORTEZOMIB [Concomitant]
     Active Substance: BORTEZOMIB

REACTIONS (18)
  - Plasma cell myeloma [Unknown]
  - Pneumonia [Not Recovered/Not Resolved]
  - Blood glucose increased [Unknown]
  - Retinal detachment [Recovering/Resolving]
  - Illness [Unknown]
  - Taste disorder [Unknown]
  - Appetite disorder [Unknown]
  - COVID-19 [Unknown]
  - Cough [Unknown]
  - Influenza [Unknown]
  - Influenza [Unknown]
  - Nausea [Not Recovered/Not Resolved]
  - Vision blurred [Not Recovered/Not Resolved]
  - Infection [Unknown]
  - Tooth infection [Unknown]
  - Therapy interrupted [Unknown]
  - Therapy interrupted [Recovered/Resolved]
  - Product dose omission issue [Recovered/Resolved]

NARRATIVE: CASE EVENT DATE: 20220101
